FAERS Safety Report 17978516 (Version 2)
Quarter: 2021Q4

REPORT INFORMATION
  Report Type: Spontaneous
  Country: DE (occurrence: DE)
  Receive Date: 20200703
  Receipt Date: 20211004
  Transmission Date: 20220303
  Serious: Yes (Hospitalization)
  Sender: FDA-Public Use
  Company Number: DE-ADRED-05091-01

PATIENT
  Age: 77 Year
  Sex: Female
  Weight: 50.2 kg

DRUGS (13)
  1. AMOXICILLIN\CLAVULANATE POTASSIUM [Suspect]
     Active Substance: AMOXICILLIN\CLAVULANATE POTASSIUM
  2. TRAMADOL [Suspect]
     Active Substance: TRAMADOL
  3. GABAPENTIN [Suspect]
     Active Substance: GABAPENTIN
  4. MELPERONE [Suspect]
     Active Substance: MELPERONE
  5. ZOPICLONE [Suspect]
     Active Substance: ZOPICLONE
  6. AMITRIPTYLINE [Suspect]
     Active Substance: AMITRIPTYLINE
  7. CHOLECALCIFEROL [Concomitant]
     Active Substance: CHOLECALCIFEROL
  8. BISOPROLOL [Concomitant]
     Active Substance: BISOPROLOL
  9. METOCLOPRAMIDE [Concomitant]
     Active Substance: METOCLOPRAMIDE
  10. PANTOPRAZOLE SODIUM [Concomitant]
     Active Substance: PANTOPRAZOLE SODIUM
  11. METAMIZOL [Concomitant]
     Active Substance: METAMIZOLE SODIUM
  12. TORSEMIDE [Concomitant]
     Active Substance: TORSEMIDE
  13. PREDNISOLONE [Concomitant]
     Active Substance: PREDNISOLONE

REACTIONS (4)
  - Hypothermia [Unknown]
  - Peripheral circulatory failure [Unknown]
  - Somnolence [Unknown]
  - Hypotension [Unknown]
